FAERS Safety Report 4415070-4 (Version None)
Quarter: 2004Q3

REPORT INFORMATION
  Report Type: 
  Country: None (occurrence: None)
  Receive Date: 20040804
  Receipt Date: 20040726
  Transmission Date: 20050211
  Serious: Yes (Hospitalization)
  Sender: FDA-Public Use
  Company Number: 200412825FR

PATIENT
  Age: 39 Year
  Sex: Male
  Weight: 77 kg

DRUGS (8)
  1. LASILIX 40 MG [Suspect]
     Route: 048
     Dates: end: 20040709
  2. TRIATEC 5 MG [Suspect]
     Route: 048
     Dates: end: 20040709
  3. OFLOCET [Suspect]
     Indication: URINARY TRACT INFECTION
     Route: 048
     Dates: start: 20040705, end: 20040709
  4. CORTANCYL 20 MG [Concomitant]
     Route: 048
  5. CELLCEPT [Concomitant]
     Route: 048
  6. AMLOR [Concomitant]
     Route: 048
  7. TENORMIN [Concomitant]
     Route: 048
  8. UN-ALFA [Concomitant]
     Dosage: DOSE UNIT: UNITS

REACTIONS (9)
  - ACIDOSIS [None]
  - ESCHERICHIA INFECTION [None]
  - GLOMERULONEPHRITIS [None]
  - HYPOPERFUSION [None]
  - KIDNEY TRANSPLANT REJECTION [None]
  - PCO2 DECREASED [None]
  - RENAL FAILURE ACUTE [None]
  - RENAL TUBULAR DISORDER [None]
  - WEIGHT DECREASED [None]
